FAERS Safety Report 12997700 (Version 6)
Quarter: 2017Q2

REPORT INFORMATION
  Report Type: Spontaneous
  Country: DE (occurrence: DE)
  Receive Date: 20161205
  Receipt Date: 20170405
  Transmission Date: 20170830
  Serious: Yes (Hospitalization, Other)
  Sender: FDA-Public Use
  Company Number: DE-AMGEN-DEUSP2016169001

PATIENT
  Sex: Male

DRUGS (46)
  1. PEGFILGRASTIM [Suspect]
     Active Substance: PEGFILGRASTIM
     Indication: B-CELL LYMPHOMA
     Dosage: 6 MG, QD
     Route: 058
     Dates: start: 20160925, end: 20160925
  2. RITUXIMAB [Suspect]
     Active Substance: RITUXIMAB
     Indication: B-CELL LYMPHOMA
     Dosage: 690 MG, QD
     Route: 042
     Dates: start: 20161006, end: 20161006
  3. COLECALCIFEROL [Concomitant]
     Active Substance: CHOLECALCIFEROL
     Dosage: UNK UNK, TID (3 IN 1 D)
     Route: 048
  4. CIPROFLOXACIN. [Concomitant]
     Active Substance: CIPROFLOXACIN
     Indication: INFECTION PROPHYLAXIS
     Dosage: 500 MG, BID
     Route: 048
     Dates: start: 20160927
  5. ALLOPURINOL. [Concomitant]
     Active Substance: ALLOPURINOL
     Dosage: 100 MG, BID
     Route: 048
     Dates: start: 2016
  6. CYCLOPHOSPHAMIDE. [Suspect]
     Active Substance: CYCLOPHOSPHAMIDE
     Dosage: 1372 MG, QD
     Route: 042
     Dates: start: 20161201, end: 20161201
  7. VINCRISTINE [Suspect]
     Active Substance: VINCRISTINE
     Dosage: 2 MG, QD
     Route: 042
     Dates: start: 20161201, end: 20161201
  8. VINCRISTINE [Suspect]
     Active Substance: VINCRISTINE
     Dosage: 2 MG, QD
     Route: 042
     Dates: start: 20161215, end: 20161215
  9. PREDNISOLONE. [Suspect]
     Active Substance: PREDNISOLONE
     Dosage: UNK, QD (FOR 5 DAYS)
     Route: 048
     Dates: start: 20161215, end: 20161215
  10. COLECALCIFEROL [Concomitant]
     Active Substance: CHOLECALCIFEROL
     Dosage: 20000 IU, 2 TIMES/WK, FOR 3 DAYS
     Route: 048
     Dates: start: 20160919
  11. TORASEMIDE [Concomitant]
     Active Substance: TORSEMIDE
     Dosage: 10 MG, QD
     Route: 048
     Dates: start: 201610
  12. ALLOPURINOL. [Concomitant]
     Active Substance: ALLOPURINOL
     Indication: GOUT
     Dosage: 225 MG, BID (450 MG)
     Route: 048
  13. TAZOBAC [Concomitant]
     Active Substance: PIPERACILLIN SODIUM\TAZOBACTAM SODIUM
     Indication: PYREXIA
     Dosage: 4.5 G, UNK
     Dates: start: 201612
  14. DOXORUBICINE [Suspect]
     Active Substance: DOXORUBICIN
     Indication: B-CELL LYMPHOMA
     Dosage: 92 MG, QD
     Route: 042
     Dates: start: 20160922, end: 20160922
  15. PREDNISOLONE. [Suspect]
     Active Substance: PREDNISOLONE
     Dosage: 100 MG, QD
     Route: 048
     Dates: start: 20161111, end: 20161115
  16. ENOXAPARIN SODIUM. [Concomitant]
     Active Substance: ENOXAPARIN SODIUM
     Indication: THROMBOSIS PROPHYLAXIS
     Dosage: 4 ML, QD
     Route: 058
     Dates: start: 20160913
  17. PEGFILGRASTIM [Suspect]
     Active Substance: PEGFILGRASTIM
     Dosage: 6 MG, QD
     Route: 058
     Dates: start: 20161204, end: 20161204
  18. CYCLOPHOSPHAMIDE. [Suspect]
     Active Substance: CYCLOPHOSPHAMIDE
     Dosage: 1372 MG, QD
     Route: 042
     Dates: start: 20161215, end: 20161215
  19. DOXORUBICINE [Suspect]
     Active Substance: DOXORUBICIN
     Dosage: 91.5 MG, QD
     Route: 042
     Dates: start: 20161215, end: 20161215
  20. TORASEMIDE [Concomitant]
     Active Substance: TORSEMIDE
     Indication: RENAL IMPAIRMENT
     Dosage: 7.5 MG, 2 IN 1 D
     Route: 048
     Dates: start: 20160916
  21. ACICLOVIR [Concomitant]
     Active Substance: ACYCLOVIR
     Indication: INFECTION PROPHYLAXIS
     Dosage: 400 MG, QID (1600 MG)
     Route: 048
     Dates: start: 20160920
  22. KALIUMCHLORIDE [Concomitant]
     Indication: HYPOKALAEMIA
     Dosage: 600 MG, TID (1800 MG)
     Route: 048
     Dates: start: 20160920
  23. KALIUMCHLORIDE [Concomitant]
     Dosage: 600 MG, TID
     Route: 048
     Dates: start: 201612
  24. CYCLOPHOSPHAMIDE. [Suspect]
     Active Substance: CYCLOPHOSPHAMIDE
     Indication: B-CELL LYMPHOMA
     Dosage: 1380 MG, QD
     Route: 042
     Dates: start: 20160922, end: 20160922
  25. PREDNISOLONE. [Suspect]
     Active Substance: PREDNISOLONE
     Dosage: UNK, QD (FOR 5 DAYS)
     Route: 048
     Dates: start: 20161201, end: 20161205
  26. SULFAMETHOXAZOLE W/TRIMETHOPRIM [Concomitant]
     Active Substance: SULFAMETHOXAZOLE\TRIMETHOPRIM
     Indication: INFECTION PROPHYLAXIS
     Dosage: 960 MG, 2 TIMES/WK
     Route: 048
     Dates: start: 20160924
  27. ACICLOVIR [Concomitant]
     Active Substance: ACYCLOVIR
     Dosage: 400 MG, BID
     Route: 048
     Dates: start: 20160920
  28. RITUXIMAB [Suspect]
     Active Substance: RITUXIMAB
     Dosage: UNK, QD
     Route: 042
     Dates: start: 20161110, end: 20161110
  29. DOXORUBICINE [Suspect]
     Active Substance: DOXORUBICIN
     Dosage: 91.5 MG, QD
     Route: 042
     Dates: start: 20161201, end: 20161201
  30. PREDNISOLONE. [Suspect]
     Active Substance: PREDNISOLONE
     Indication: B-CELL LYMPHOMA
     Dosage: UNK, QD (FOR 5 DAYS)
     Route: 048
     Dates: start: 20160922, end: 20160926
  31. COLECALCIFEROL [Concomitant]
     Active Substance: CHOLECALCIFEROL
     Indication: VITAMIN D DEFICIENCY
     Dosage: 20000 IU, 2 TIMES/WK (FOR 3 DAYS)
     Route: 048
     Dates: start: 20160915
  32. PREGABALIN. [Concomitant]
     Active Substance: PREGABALIN
     Indication: NEURALGIA
     Dosage: 75 MG, BID (150 MG)
     Dates: start: 201611
  33. PEGFILGRASTIM [Suspect]
     Active Substance: PEGFILGRASTIM
     Dosage: 300 MUG, QD
     Route: 058
     Dates: start: 20161114
  34. PEGFILGRASTIM [Suspect]
     Active Substance: PEGFILGRASTIM
     Dosage: 6 MG, QD
     Route: 058
     Dates: start: 20161218, end: 20161218
  35. FILGRASTIM [Suspect]
     Active Substance: FILGRASTIM
     Indication: B-CELL LYMPHOMA
     Dosage: 300 MUG, QD
     Route: 058
     Dates: start: 20161114
  36. RITUXIMAB [Suspect]
     Active Substance: RITUXIMAB
     Dosage: UNK, QD
     Route: 042
     Dates: start: 20161130, end: 20161130
  37. VINCRISTINE [Suspect]
     Active Substance: VINCRISTINE
     Indication: B-CELL LYMPHOMA
     Dosage: 2 MG, QD
     Route: 042
     Dates: start: 20160922
  38. RAMIPRIL. [Concomitant]
     Active Substance: RAMIPRIL
     Indication: HYPERTENSION
     Dosage: 5 MG, QD
     Route: 048
     Dates: start: 20160919
  39. TAMSULOSIN [Concomitant]
     Active Substance: TAMSULOSIN
     Indication: BENIGN PROSTATIC HYPERPLASIA
     Dosage: 4 MG, QD
     Route: 048
  40. BISOPROLOL HEMIFUMARATE [Concomitant]
     Active Substance: BISOPROLOL FUMARATE
     Indication: HYPERTENSION
     Dosage: 2.5 MG, BID (5 MG (2. 5 MG, 2 IN 1 D))
     Route: 048
  41. RITUXIMAB [Suspect]
     Active Substance: RITUXIMAB
     Dosage: UNK UNK, QD
     Route: 042
     Dates: start: 20161214, end: 20161214
  42. CYCLOPHOSPHAMIDE. [Suspect]
     Active Substance: CYCLOPHOSPHAMIDE
     Dosage: 1350 MG, QD
     Route: 042
     Dates: start: 20161111, end: 20161111
  43. DOXORUBICINE [Suspect]
     Active Substance: DOXORUBICIN
     Dosage: 90 MG, QD
     Route: 042
     Dates: start: 20161111, end: 20161111
  44. VINCRISTINE [Suspect]
     Active Substance: VINCRISTINE
     Dosage: 2 MG, QD
     Route: 042
     Dates: start: 20161111, end: 20161111
  45. AMPHOTERICIN B. [Concomitant]
     Active Substance: AMPHOTERICIN B
     Indication: INFECTION PROPHYLAXIS
     Dosage: 5 ML, QID
     Route: 048
     Dates: start: 20160915
  46. PANTOPRAZOLE [Concomitant]
     Active Substance: PANTOPRAZOLE
     Indication: PROPHYLAXIS AGAINST GASTROINTESTINAL ULCER
     Dosage: 40 MG, QD
     Route: 048
     Dates: start: 20160914

REACTIONS (2)
  - Diarrhoea [Recovered/Resolved]
  - Lymphocele [Recovered/Resolved]

NARRATIVE: CASE EVENT DATE: 20161007
